FAERS Safety Report 5604354-X (Version None)
Quarter: 2008Q1

REPORT INFORMATION
  Report Type: 
  Country: None (occurrence: None)
  Receive Date: 20080123
  Receipt Date: 20080123
  Transmission Date: 20080703
  Serious: Yes (Death)
  Sender: FDA-Public Use
  Company Number: None

PATIENT
  Age: 75 Year
  Sex: Male
  Weight: 101.3 kg

DRUGS (6)
  1. COUMADIN [Suspect]
     Indication: ATRIAL FIBRILLATION
     Dosage: 7.5 MG QHS PO
     Route: 048
     Dates: start: 20070805, end: 20070807
  2. COUMADIN [Suspect]
     Indication: ELDERLY
     Dosage: 7.5 MG QHS PO
     Route: 048
     Dates: start: 20070805, end: 20070807
  3. COUMADIN [Suspect]
     Indication: TRANSIENT ISCHAEMIC ATTACK
     Dosage: 7.5 MG QHS PO
     Route: 048
     Dates: start: 20070805, end: 20070807
  4. LOVENOX [Suspect]
     Indication: ATRIAL FIBRILLATION
     Dosage: 100 MG BID SQ
     Route: 058
     Dates: start: 20070805, end: 20070808
  5. LOVENOX [Suspect]
     Indication: ELDERLY
     Dosage: 100 MG BID SQ
     Route: 058
     Dates: start: 20070805, end: 20070808
  6. LOVENOX [Suspect]
     Indication: TRANSIENT ISCHAEMIC ATTACK
     Dosage: 100 MG BID SQ
     Route: 058
     Dates: start: 20070805, end: 20070808

REACTIONS (2)
  - ATRIAL FIBRILLATION [None]
  - RETROPERITONEAL HAEMORRHAGE [None]
